FAERS Safety Report 25147802 (Version 1)
Quarter: 2025Q2

REPORT INFORMATION
  Report Type: Spontaneous
  Country: US (occurrence: US)
  Receive Date: 20250402
  Receipt Date: 20250402
  Transmission Date: 20250717
  Serious: No
  Sender: BRISTOL MYERS SQUIBB
  Company Number: US-BRISTOL-MYERS SQUIBB COMPANY-2025-048634

PATIENT
  Age: 47 Year
  Sex: Female

DRUGS (1)
  1. ZEPOSIA [Suspect]
     Active Substance: OZANIMOD HYDROCHLORIDE
     Indication: Multiple sclerosis
     Route: 048
     Dates: start: 202502

REACTIONS (6)
  - Aphasia [Unknown]
  - Dizziness [Unknown]
  - Fatigue [Unknown]
  - Tremor [Unknown]
  - Depression [Unknown]
  - Head titubation [Unknown]

NARRATIVE: CASE EVENT DATE: 20250301
